FAERS Safety Report 8295370-0 (Version None)
Quarter: 2012Q2

REPORT INFORMATION
  Report Type: 
  Country: None (occurrence: None)
  Receive Date: 20120418
  Receipt Date: 20120323
  Transmission Date: 20120825
  Serious: Yes (Other)
  Sender: FDA-Public Use
  Company Number: PT-BAXTER-2012BH007711

PATIENT
  Age: 65 Year
  Sex: Female

DRUGS (10)
  1. PHYSIONEAL 35 GLUCOSE 1,36% P/V/ 13,6 MG/ML [Suspect]
     Route: 033
  2. LORENIN [Concomitant]
     Route: 065
  3. PHYSIONEAL 35 GLUCOSE 2,27% P/V/ 2,27 MG/ML [Suspect]
  4. DARBEPOETIN ALFA [Concomitant]
     Route: 065
  5. SEVELAMER [Concomitant]
     Route: 065
  6. EZETIMIBE [Concomitant]
     Route: 065
  7. HYDROXYZINE [Concomitant]
     Route: 065
  8. EXTRANEAL [Suspect]
     Route: 033
     Dates: start: 20090601
  9. FOLIC ACID [Concomitant]
     Route: 065
  10. VITAMIN B COMPLEX CAP [Concomitant]
     Route: 065

REACTIONS (2)
  - PERITONITIS BACTERIAL [None]
  - PERITONEAL DIALYSIS COMPLICATION [None]
